FAERS Safety Report 21478052 (Version 7)
Quarter: 2024Q1

REPORT INFORMATION
  Report Type: Report from Study
  Country: CA (occurrence: CA)
  Receive Date: 20221019
  Receipt Date: 20240201
  Transmission Date: 20240410
  Serious: Yes (Death, Hospitalization)
  Sender: FDA-Public Use
  Company Number: CA-MYLANLABS-2022M1114974

PATIENT

DRUGS (4)
  1. HULIO [Suspect]
     Active Substance: ADALIMUMAB-FKJP
     Indication: Arthritis
     Dosage: 40 MG, QW
     Route: 058
     Dates: start: 20210812
  2. HULIO [Suspect]
     Active Substance: ADALIMUMAB-FKJP
     Indication: Crohn^s disease
     Dosage: 40 MG, QW (EVERY WEEK)
     Route: 058
     Dates: start: 20210929
  3. HULIO [Suspect]
     Active Substance: ADALIMUMAB-FKJP
     Dosage: UNK
     Route: 065
     Dates: start: 20221118
  4. PREDNISONE [Concomitant]
     Active Substance: PREDNISONE
     Indication: Product used for unknown indication
     Dosage: 10 MG, QD
     Route: 065

REACTIONS (10)
  - Death [Fatal]
  - Hospitalisation [Not Recovered/Not Resolved]
  - Short-bowel syndrome [Unknown]
  - Mass [Unknown]
  - Bladder neoplasm [Unknown]
  - Diarrhoea [Unknown]
  - Rash macular [Unknown]
  - Abdominal pain [Unknown]
  - Product dose omission issue [Unknown]
  - Off label use [Unknown]

NARRATIVE: CASE EVENT DATE: 20210812
